FAERS Safety Report 5861680-7 (Version None)
Quarter: 2008Q3

REPORT INFORMATION
  Report Type: 
  Country: None (occurrence: None)
  Receive Date: 20080827
  Receipt Date: 20080620
  Transmission Date: 20090109
  Serious: No
  Sender: FDA-Public Use
  Company Number: US-ABBOTT-08P-163-0458802-00

PATIENT
  Sex: Female
  Weight: 58.112 kg

DRUGS (4)
  1. COATED PDS [Suspect]
     Indication: BLOOD TRIGLYCERIDES INCREASED
     Route: 048
     Dates: start: 20080613, end: 20080619
  2. ATENOLOL [Concomitant]
     Indication: BLOOD PRESSURE
     Route: 048
  3. TRIAMTERENE [Concomitant]
     Indication: BLOOD PRESSURE
     Route: 048
  4. RAMIPRIL [Concomitant]
     Indication: BLOOD PRESSURE
     Route: 048

REACTIONS (1)
  - BLOOD GLUCOSE DECREASED [None]
